FAERS Safety Report 6291810-7 (Version None)
Quarter: 2009Q3

REPORT INFORMATION
  Report Type: 
  Country: None (occurrence: None)
  Receive Date: 20090730
  Receipt Date: 20090709
  Transmission Date: 20100115
  Serious: Yes (Hospitalization)
  Sender: FDA-Public Use
  Company Number: PL-GENENTECH-255281

PATIENT
  Sex: Female
  Weight: 50 kg

DRUGS (8)
  1. BEVACIZUMAB [Suspect]
     Indication: NON-SMALL CELL LUNG CANCER
     Dosage: 420 MG, Q3W
     Route: 042
     Dates: start: 20071213
  2. CISPLATIN [Suspect]
     Indication: NON-SMALL CELL LUNG CANCER
     Dosage: 155 MG, Q3W
     Route: 042
     Dates: start: 20071213
  3. CISPLATIN [Suspect]
     Dosage: 155 MG, Q3W
     Route: 042
  4. VINORELBINE [Suspect]
     Indication: NON-SMALL CELL LUNG CANCER
     Dosage: 4615 MG, DAY1+8/Q3W
     Route: 042
     Dates: start: 20071213
  5. VINORELBINE [Suspect]
     Dosage: 4615 MG, DAY1+8/Q3W
     Route: 042
  6. BISOPROLOL FUMARATE [Concomitant]
     Indication: DRUG USE FOR UNKNOWN INDICATION
     Dosage: UNK
     Dates: start: 20000101
  7. ACARD [Concomitant]
     Indication: DRUG USE FOR UNKNOWN INDICATION
     Dosage: UNK
     Dates: start: 20000101
  8. METOCLOPRAMIDE [Concomitant]
     Indication: DRUG USE FOR UNKNOWN INDICATION
     Dates: start: 20071220

REACTIONS (2)
  - ASTHENIA [None]
  - HYPOKALAEMIA [None]
